FAERS Safety Report 7310072-2 (Version None)
Quarter: 2011Q1

REPORT INFORMATION
  Report Type: 
  Country: None (occurrence: None)
  Receive Date: 20110224
  Receipt Date: 20101201
  Transmission Date: 20110831
  Serious: No
  Sender: FDA-Public Use
  Company Number: US-BAYER-2010-007401

PATIENT
  Sex: Female

DRUGS (2)
  1. MIRENA [Suspect]
     Indication: CONTRACEPTION
     Dosage: 20 ?G/D, CONT
     Route: 015
  2. MIRENA [Suspect]
     Dosage: 20 ?G/D, CONT
     Route: 015
     Dates: start: 20100201, end: 20101129

REACTIONS (8)
  - MUSCLE SPASMS [None]
  - DEVICE EXPULSION [None]
  - PENILE PAIN [None]
  - DEVICE DISLOCATION [None]
  - HAEMORRHAGE [None]
  - PROCEDURAL PAIN [None]
  - DEVICE DIFFICULT TO USE [None]
  - PAIN [None]
